FAERS Safety Report 10242776 (Version 3)
Quarter: 2014Q3

REPORT INFORMATION
  Report Type: Report from Study
  Country: BR (occurrence: BR)
  Receive Date: 20140617
  Receipt Date: 20140822
  Transmission Date: 20150326
  Serious: Yes (Life-Threatening, Hospitalization, Other)
  Sender: FDA-Public Use
  Company Number: PHHY2014BR072417

PATIENT
  Sex: Male
  Weight: 73 kg

DRUGS (20)
  1. VASTAREL [Concomitant]
     Active Substance: TRIMETAZIDINE DIHYDROCHLORIDE
     Indication: CARDIAC DISORDER
     Dosage: UNK UKN, UNK
  2. ROSUVASTATIN [Concomitant]
     Active Substance: ROSUVASTATIN
     Indication: BLOOD CHOLESTEROL ABNORMAL
     Dosage: UNK UKN, UNK
  3. MONOCORDIL [Concomitant]
     Active Substance: ISOSORBIDE MONONITRATE
     Indication: CARDIAC DISORDER
     Dosage: UNK UKN, UNK
  4. VALSARTAN. [Concomitant]
     Active Substance: VALSARTAN
     Indication: CARDIAC DISORDER
     Dosage: UNK UKN, UNK
     Dates: start: 201405
  5. GALVUS MET [Suspect]
     Active Substance: METFORMIN HYDROCHLORIDE\VILDAGLIPTIN
     Indication: DIABETES MELLITUS
     Dosage: 2 DF (METF 500 MG, VILD 50 MG), BID (AT 8 AM AND AT 8 PM)
     Route: 048
  6. ASPIRINA PREVENT [Concomitant]
     Active Substance: ASPIRIN
     Indication: ANTICOAGULANT THERAPY
     Dosage: UNK UKN, UNK
  7. ESCITALOPRAM [Concomitant]
     Active Substance: ESCITALOPRAM OXALATE
     Indication: DEPRESSION
     Dosage: UNK UKN, UNK
     Dates: start: 201401
  8. METFORMIN [Suspect]
     Active Substance: METFORMIN HYDROCHLORIDE
     Indication: DIABETES MELLITUS
     Dosage: 1 DF, DAILY
     Route: 048
  9. PROCORALAN [Concomitant]
     Active Substance: IVABRADINE
     Indication: CARDIAC DISORDER
     Dosage: UNK UKN, UNK
  10. ESCITALOPRAM [Concomitant]
     Active Substance: ESCITALOPRAM OXALATE
     Indication: PANIC DISORDER
  11. ESCITALOPRAM [Concomitant]
     Active Substance: ESCITALOPRAM OXALATE
     Indication: ANXIETY
  12. PURAN [Concomitant]
     Active Substance: LEVOTHYROXINE SODIUM
     Indication: THYROID DISORDER
     Dosage: UNK UKN, UNK
     Dates: start: 201404
  13. HUMALOG [Concomitant]
     Active Substance: INSULIN LISPRO
     Dosage: 4 DF, UNK
  14. OMEPRAZOLE. [Concomitant]
     Active Substance: OMEPRAZOLE
     Indication: ABDOMINAL DISCOMFORT
     Dosage: UNK UKN, UNK
  15. LANTUS [Concomitant]
     Active Substance: INSULIN GLARGINE
     Indication: DIABETES MELLITUS
     Dosage: UNK UKN, UNK
  16. HUMALOG [Concomitant]
     Active Substance: INSULIN LISPRO
     Indication: DIABETES MELLITUS
     Dosage: UNK UKN, UNK
  17. ALDACTONE [Concomitant]
     Active Substance: SPIRONOLACTONE
     Indication: HYPERTENSION
     Dosage: UNK UKN, UNK
     Dates: start: 201401
  18. DOXAZOSIN MESILATE [Concomitant]
     Active Substance: DOXAZOSIN MESYLATE
     Indication: PROSTATIC DISORDER
     Dosage: UNK UKN, UNK
  19. DOXAZOSIN MESILATE [Concomitant]
     Active Substance: DOXAZOSIN MESYLATE
     Indication: DYSURIA
  20. RESVERATROL [Concomitant]
     Active Substance: RESVERATROL
     Indication: CARDIAC DISORDER
     Dosage: UNK UKN, UNK

REACTIONS (15)
  - Arterial occlusive disease [Recovered/Resolved]
  - Nervousness [Recovered/Resolved]
  - Movement disorder [Recovered/Resolved]
  - Infarction [Recovered/Resolved]
  - Coma [Recovered/Resolved]
  - Cardiac disorder [Recovered/Resolved]
  - Ventricular dysfunction [Recovered/Resolved]
  - Wound [Unknown]
  - Speech disorder [Unknown]
  - Diabetes mellitus [Recovered/Resolved]
  - Angina pectoris [Recovered/Resolved]
  - Pneumonia [Recovered/Resolved]
  - Muscle atrophy [Recovered/Resolved]
  - Malaise [Recovered/Resolved]
  - Scar [Recovered/Resolved]
